FAERS Safety Report 24760330 (Version 1)
Quarter: 2024Q4

REPORT INFORMATION
  Report Type: Spontaneous
  Country: CA (occurrence: CA)
  Receive Date: 20241220
  Receipt Date: 20241220
  Transmission Date: 20250115
  Serious: Yes (Death, Life-Threatening, Hospitalization, Disabling, Other)
  Sender: FERRING
  Company Number: CA-FERRINGPH-2023FE04122

PATIENT

DRUGS (67)
  1. ANHYDROUS CITRIC ACID\MAGNESIUM OXIDE\SODIUM PICOSULFATE [Suspect]
     Active Substance: ANHYDROUS CITRIC ACID\MAGNESIUM OXIDE\SODIUM PICOSULFATE
     Indication: Product used for unknown indication
     Route: 065
  2. ANHYDROUS CITRIC ACID\MAGNESIUM OXIDE\SODIUM PICOSULFATE [Suspect]
     Active Substance: ANHYDROUS CITRIC ACID\MAGNESIUM OXIDE\SODIUM PICOSULFATE
     Indication: Constipation
     Dosage: 10 MG
     Route: 065
  3. BUDESONIDE\FORMOTEROL [Suspect]
     Active Substance: BUDESONIDE\FORMOTEROL
     Indication: Product used for unknown indication
     Dosage: UNK
     Route: 065
  4. ALBUTEROL SULFATE [Suspect]
     Active Substance: ALBUTEROL SULFATE
     Indication: Asthma
     Route: 065
  5. CORTISONE (HYDROCORTISONE) [Suspect]
     Active Substance: HYDROCORTISONE
     Indication: Product used for unknown indication
     Route: 065
  6. EFINACONAZOLE [Suspect]
     Active Substance: EFINACONAZOLE
     Indication: Product used for unknown indication
     Route: 061
  7. IPRATROPIUM [Suspect]
     Active Substance: IPRATROPIUM
     Indication: Sleep disorder therapy
     Dosage: 4.1 UNK
  8. IPRATROPIUM [Suspect]
     Active Substance: IPRATROPIUM
     Indication: Dyspnoea
     Dosage: UNK, DAILY
     Route: 065
  9. IPRATROPIUM [Suspect]
     Active Substance: IPRATROPIUM
     Dosage: UNK
     Route: 006
  10. IPRATROPIUM BROMIDE [Suspect]
     Active Substance: IPRATROPIUM BROMIDE
     Indication: Sleep disorder therapy
     Dosage: 4 DOSAGE FORM, DAILY
  11. IPRATROPIUM BROMIDE [Suspect]
     Active Substance: IPRATROPIUM BROMIDE
     Indication: Off label use
  12. IPRATROPIUM BROMIDE [Suspect]
     Active Substance: IPRATROPIUM BROMIDE
     Indication: Intentional product misuse
  13. IPRATROPIUM BROMIDE [Suspect]
     Active Substance: IPRATROPIUM BROMIDE
     Indication: Dyspnoea
  14. POLYETHYLENE GLYCOL 3350 [Suspect]
     Active Substance: POLYETHYLENE GLYCOL 3350
     Indication: Off label use
     Dosage: 17 MG QD, 17 (UNK), 17 MG, QD, 3 MG, 1/WK
     Route: 048
  15. POLYETHYLENE GLYCOL 3350 [Suspect]
     Active Substance: POLYETHYLENE GLYCOL 3350
     Indication: Constipation
     Dosage: 2.5 ML
     Route: 042
  16. METRONIDAZOLE [Suspect]
     Active Substance: METRONIDAZOLE
     Indication: Product used for unknown indication
     Dosage: 500 MG, 3 TIMES DAILY; FREQ: 8H
     Route: 065
  17. METRONIDAZOLE [Suspect]
     Active Substance: METRONIDAZOLE
     Indication: Off label use
  18. METRONIDAZOLE [Suspect]
     Active Substance: METRONIDAZOLE
     Indication: Intentional product misuse
  19. METRONIDAZOLE [Suspect]
     Active Substance: METRONIDAZOLE
     Indication: Bacterial infection
  20. NITROGLYCERIN [Suspect]
     Active Substance: NITROGLYCERIN
     Indication: Product used for unknown indication
     Route: 065
  21. PHYTONADIONE [Suspect]
     Active Substance: PHYTONADIONE
     Indication: Vitamin supplementation
     Dosage: 5 MG
     Route: 065
  22. PHYTONADIONE [Suspect]
     Active Substance: PHYTONADIONE
     Indication: Off label use
     Dosage: 5 MG, PRN
     Route: 065
  23. PHYTONADIONE [Suspect]
     Active Substance: PHYTONADIONE
     Dosage: 5 MG, DAILY
     Route: 065
  24. RAMIPRIL [Suspect]
     Active Substance: RAMIPRIL
     Indication: Prophylaxis
     Route: 048
  25. RAMIPRIL [Suspect]
     Active Substance: RAMIPRIL
     Indication: Asthma
     Dosage: UNK
     Route: 065
  26. ALBUTEROL [Suspect]
     Active Substance: ALBUTEROL
     Indication: Off label use
     Dosage: 7.4 DF, QD, UNKNOWN, 9.1 DF, 10.4 DF, Q6HR, 11 QD, 12.4 QD
     Route: 055
  27. ALBUTEROL [Suspect]
     Active Substance: ALBUTEROL
     Indication: Intentional product misuse
     Dosage: 1 DOSAGE FORM, 4 TIMES DAILY
  28. ALBUTEROL [Suspect]
     Active Substance: ALBUTEROL
     Indication: Chronic obstructive pulmonary disease
     Dosage: UNK
     Route: 065
  29. ALBUTEROL [Suspect]
     Active Substance: ALBUTEROL
     Indication: Prophylaxis
     Dosage: 1 DF QD
     Route: 055
  30. ALBUTEROL [Suspect]
     Active Substance: ALBUTEROL
     Indication: Asthma
     Dosage: 1 DF IN 6 HOURS
     Route: 055
  31. ALBUTEROL [Suspect]
     Active Substance: ALBUTEROL
     Dosage: UNK
     Route: 006
  32. DALTEPARIN SODIUM [Suspect]
     Active Substance: DALTEPARIN SODIUM
     Indication: Pulmonary embolism
     Route: 065
  33. GABAPENTIN [Suspect]
     Active Substance: GABAPENTIN
     Indication: Neuralgia
     Dosage: 100 MG, 1 TIME DAILY
     Route: 065
  34. SODIUM PHOSPHATE, MONOBASIC [Suspect]
     Active Substance: SODIUM PHOSPHATE, MONOBASIC
     Indication: Constipation
     Dosage: 133 ML
     Route: 065
  35. BISACODYL [Suspect]
     Active Substance: BISACODYL
     Indication: Constipation
     Dosage: 10 MG
     Route: 065
  36. CALCITRIOL [Suspect]
     Active Substance: CALCITRIOL
     Indication: Vitamin D abnormal
     Dosage: 0.25 UG, 1 TIME DAILY
     Route: 065
  37. VILANTEROL TRIFENATATE [Suspect]
     Active Substance: VILANTEROL TRIFENATATE
     Indication: Product used for unknown indication
     Route: 065
  38. INSULIN DEGLUDEC [Suspect]
     Active Substance: INSULIN DEGLUDEC
     Indication: Diabetes mellitus
     Route: 065
  39. CEFTRIAXONE [Suspect]
     Active Substance: CEFTRIAXONE
     Indication: Bacterial infection
     Dosage: 2 G, 1 TIME DAILY
     Route: 065
  40. NOREPINEPHRINE [Suspect]
     Active Substance: NOREPINEPHRINE\NOREPINEPHRINE BITARTRATE
     Indication: Stress
     Route: 065
  41. MELATONIN [Suspect]
     Active Substance: MELATONIN
     Indication: Sleep disorder therapy
     Dosage: 3 MG, 1 TIME DAILY
     Route: 065
  42. LANSOPRAZOLE [Suspect]
     Active Substance: LANSOPRAZOLE
     Indication: Antacid therapy
     Dosage: 30 MG, 1 TIME DAILY
     Route: 065
  43. INSULIN ASPART [Suspect]
     Active Substance: INSULIN ASPART
     Indication: Diabetes mellitus
     Route: 065
  44. HYDROMORPHONE HYDROCHLORIDE [Suspect]
     Active Substance: HYDROMORPHONE HYDROCHLORIDE
     Indication: Analgesic therapy
     Dosage: 6 MG, 4 TIMES DAILY
     Route: 065
  45. DOBUTAMINE [Suspect]
     Active Substance: DOBUTAMINE HYDROCHLORIDE
     Indication: Cardiogenic shock
     Route: 065
  46. HEPARIN SODIUM [Suspect]
     Active Substance: HEPARIN SODIUM
     Indication: Anticoagulant therapy
     Dosage: 50 ML
     Route: 065
  47. DEXTROSE [Suspect]
     Active Substance: DEXTROSE MONOHYDRATE
     Indication: Nutritional supplementation
     Dosage: 12.5 G
     Route: 065
  48. ALLOPURINOL [Suspect]
     Active Substance: ALLOPURINOL
     Indication: Blood uric acid increased
     Dosage: 1 DOSAGE FORM, 1 TIME DAILY
     Route: 065
  49. ACETAMINOPHEN [Suspect]
     Active Substance: ACETAMINOPHEN
     Indication: Analgesic therapy
     Dosage: 650 MG, 1 TIME DAILY
     Route: 065
  50. AMIODARONE [Suspect]
     Active Substance: AMIODARONE
     Indication: Ventricular fibrillation
     Dosage: 150 MG, 1 TIME DAILY
     Route: 065
  51. SIMVASTATIN [Suspect]
     Active Substance: SIMVASTATIN
     Indication: Blood cholesterol increased
     Dosage: 40 MG, 1 TIME DAILY
     Route: 065
  52. VASOPRESSIN [Suspect]
     Active Substance: VASOPRESSIN
     Indication: Drug therapy
     Dosage: UNK
     Route: 065
  53. FLUTICASONE FUROATE\VILANTEROL TRIFENATATE [Suspect]
     Active Substance: FLUTICASONE FUROATE\VILANTEROL TRIFENATATE
     Indication: Product used for unknown indication
     Route: 065
  54. SODIUM CITRATE [Suspect]
     Active Substance: SODIUM CITRATE
     Indication: Thrombosis
     Dosage: 2.5 ML
     Route: 065
  55. VITAMIN K1 [Suspect]
     Active Substance: PHYTONADIONE
     Indication: Vitamin supplementation
     Dosage: 5 MG
     Route: 065
  56. BETAMETHASONE [Suspect]
     Active Substance: BETAMETHASONE
     Indication: Swelling
     Route: 065
  57. SODIUM FERRIC GLUCONATE COMPLEX [Suspect]
     Active Substance: SODIUM FERRIC GLUCONATE COMPLEX
     Indication: Iron deficiency
     Dosage: 4.64 MG FREQ: 4 WK
     Route: 065
  58. ONDANSETRON HYDROCHLORIDE [Suspect]
     Active Substance: ONDANSETRON HYDROCHLORIDE
     Indication: Vomiting
     Dosage: 40 MG, 3 TIMES DAILY (EVERY 8 HOURS)
     Route: 065
  59. ONDANSETRON HYDROCHLORIDE [Suspect]
     Active Substance: ONDANSETRON HYDROCHLORIDE
     Indication: Nausea
  60. PYRIDOXINE HYDROCHLORIDE [Suspect]
     Active Substance: PYRIDOXINE HYDROCHLORIDE
     Indication: Vitamin supplementation
  61. LANTHANUM CARBONATE [Suspect]
     Active Substance: LANTHANUM CARBONATE
     Indication: Blood phosphorus increased
     Dosage: 500 MG
     Route: 065
  62. DARBEPOETIN ALFA [Suspect]
     Active Substance: DARBEPOETIN ALFA
     Indication: Anaemia
     Dosage: .71 UG FREQ: 2 WK
     Route: 065
  63. UMECLIDINIUM BROMIDE [Suspect]
     Active Substance: UMECLIDINIUM BROMIDE
     Indication: Dyspnoea
     Dosage: 1 INTERNATIONAL UNIT, 1 TIME DAILY
     Route: 065
  64. WARFARIN [Suspect]
     Active Substance: WARFARIN
     Indication: Thrombosis
     Dosage: 2 G, 1 TIME DAILY
     Route: 065
  65. BETA CAROTENE [Concomitant]
     Active Substance: BETA CAROTENE
  66. POTASSIUM CHLORIDE [Concomitant]
     Active Substance: POTASSIUM CHLORIDE
  67. VITAMIN C [Concomitant]
     Active Substance: ASCORBIC ACID

REACTIONS (93)
  - Abdominal distension [Fatal]
  - Appendicitis [Fatal]
  - Appendicolith [Fatal]
  - Ascites [Fatal]
  - Aspiration [Fatal]
  - Asthenia [Fatal]
  - Asthma [Fatal]
  - Bacterial infection [Fatal]
  - Bronchiectasis [Fatal]
  - Bronchopulmonary aspergillosis allergic [Fatal]
  - Cardiogenic shock [Fatal]
  - Chronic obstructive pulmonary disease [Fatal]
  - Condition aggravated [Fatal]
  - Cough [Fatal]
  - Death [Fatal]
  - Drug hypersensitivity [Fatal]
  - Gastrooesophageal reflux disease [Fatal]
  - General physical health deterioration [Fatal]
  - Haemoptysis [Fatal]
  - Hyperphosphataemia [Fatal]
  - Hyponatraemia [Fatal]
  - Hypophosphataemia [Fatal]
  - Hypoxia [Fatal]
  - Iron deficiency [Fatal]
  - Lower respiratory tract infection [Fatal]
  - Lung opacity [Fatal]
  - Multiple organ dysfunction syndrome [Fatal]
  - Myasthenia gravis [Fatal]
  - Neuralgia [Fatal]
  - Obstructive airways disorder [Fatal]
  - Pain [Fatal]
  - Pleural effusion [Fatal]
  - Pneumonia [Fatal]
  - Pulmonary embolism [Fatal]
  - Pulmonary fibrosis [Fatal]
  - Rales [Fatal]
  - Sepsis [Fatal]
  - Pulmonary mass [Fatal]
  - Somnolence [Fatal]
  - Sputum discoloured [Fatal]
  - Stress [Fatal]
  - Swelling [Fatal]
  - Thrombosis [Fatal]
  - Total lung capacity decreased [Fatal]
  - Tremor [Fatal]
  - Upper respiratory tract infection [Fatal]
  - Ventricular fibrillation [Fatal]
  - Wheezing [Fatal]
  - Oedema peripheral [Fatal]
  - Musculoskeletal stiffness [Fatal]
  - Dyspnoea [Fatal]
  - Dry mouth [Fatal]
  - Diabetes mellitus [Fatal]
  - Anaemia [Fatal]
  - Vomiting [Fatal]
  - Sleep disorder [Fatal]
  - Pyrexia [Fatal]
  - Nausea [Fatal]
  - Headache [Fatal]
  - Fatigue [Fatal]
  - Constipation [Fatal]
  - Abdominal pain [Fatal]
  - Abdominal pain upper [Fatal]
  - Drug ineffective [Fatal]
  - Drug intolerance [Fatal]
  - Incorrect route of product administration [Fatal]
  - Intentional product misuse [Fatal]
  - Off label use [Fatal]
  - Product dose omission issue [Fatal]
  - Product use in unapproved indication [Fatal]
  - Activated partial thromboplastin time prolonged [Fatal]
  - Antacid therapy [Fatal]
  - Anticoagulant therapy [Fatal]
  - Aortic stenosis [Fatal]
  - Aspartate aminotransferase increased [Fatal]
  - Benign prostatic hyperplasia [Fatal]
  - Breath sounds abnormal [Fatal]
  - Congenital hiatus hernia [Fatal]
  - Coronary artery disease [Fatal]
  - End stage renal disease [Fatal]
  - Full blood count abnormal [Fatal]
  - Gout [Fatal]
  - Hyperlipidaemia [Fatal]
  - Joint injury [Fatal]
  - Malignant melanoma in situ [Fatal]
  - Micturition urgency [Fatal]
  - Pleuritic pain [Fatal]
  - Sleep disorder therapy [Fatal]
  - Blood phosphorus increased [Fatal]
  - Somnolence [Fatal]
  - Blood cholesterol increased [Fatal]
  - Blood uric acid increased [Fatal]
  - Sleep disorder [Fatal]

NARRATIVE: CASE EVENT DATE: 20200101
